FAERS Safety Report 8450567-1 (Version None)
Quarter: 2012Q2

REPORT INFORMATION
  Report Type: 
  Country: None (occurrence: None)
  Receive Date: 20120620
  Receipt Date: 20120615
  Transmission Date: 20120825
  Serious: Yes (Other)
  Sender: FDA-Public Use
  Company Number: US-INCYTE CORPORATION-2012IN001073

PATIENT
  Sex: Female

DRUGS (2)
  1. JAKAFI [Suspect]
     Indication: MYELOFIBROSIS
  2. JAKAFI [Suspect]
     Indication: BUDD-CHIARI SYNDROME

REACTIONS (1)
  - MENINGITIS CRYPTOCOCCAL [None]
